FAERS Safety Report 6727742-7 (Version None)
Quarter: 2010Q2

REPORT INFORMATION
  Report Type: 
  Country: None (occurrence: None)
  Receive Date: 20100512
  Receipt Date: 20100429
  Transmission Date: 20101027
  Serious: Yes (Other)
  Sender: FDA-Public Use
  Company Number: 011361

PATIENT
  Sex: Female
  Weight: 63 kg

DRUGS (3)
  1. CERTOLIZUMAB PEGOL           (CERTOLIZUMAB PEGOL) [Suspect]
     Indication: RHEUMATOID ARTHRITIS
     Dosage: SUBCUTANEOUS
     Route: 058
     Dates: start: 20100201, end: 20100426
  2. OMEP [Concomitant]
  3. CALCIUM D3 [Concomitant]

REACTIONS (4)
  - DRUG INTOLERANCE [None]
  - PSORIASIS [None]
  - TRANSAMINASES INCREASED [None]
  - UNEVALUABLE EVENT [None]
